FAERS Safety Report 6690595-X (Version None)
Quarter: 2010Q2

REPORT INFORMATION
  Report Type: 
  Country: None (occurrence: None)
  Receive Date: 20100421
  Receipt Date: 20100412
  Transmission Date: 20101027
  Serious: Yes (Hospitalization, Congenital Anomaly)
  Sender: FDA-Public Use
  Company Number: B0646606A

PATIENT
  Sex: Male
  Weight: 3.6 kg

DRUGS (3)
  1. DEROXAT [Suspect]
     Indication: DRUG USE FOR UNKNOWN INDICATION
     Dosage: 20MG PER DAY
     Dates: end: 20100227
  2. SYNTOCINON [Concomitant]
     Dates: start: 20100227, end: 20100227
  3. AUGMENTIN '125' [Concomitant]
     Indication: COMPLICATION OF DELIVERY
     Dosage: 2G PER DAY
     Dates: start: 20100227, end: 20100227

REACTIONS (9)
  - ATRIAL SEPTAL DEFECT [None]
  - DRUG EXPOSURE DURING PREGNANCY [None]
  - HYPOXIA [None]
  - NEONATAL RESPIRATORY DISTRESS SYNDROME [None]
  - PATENT DUCTUS ARTERIOSUS [None]
  - PERSISTENT FOETAL CIRCULATION [None]
  - PULMONARY ARTERIAL HYPERTENSION [None]
  - TACHYPNOEA [None]
  - TREMOR [None]
